FAERS Safety Report 24390891 (Version 1)
Quarter: 2024Q4

REPORT INFORMATION
  Report Type: Spontaneous
  Country: US (occurrence: US)
  Receive Date: 20241003
  Receipt Date: 20241003
  Transmission Date: 20250115
  Serious: Yes (Hospitalization)
  Sender: ALKEM
  Company Number: US-ALKEM LABORATORIES LIMITED-US-ALKEM-2024-18229

PATIENT
  Age: 5 Decade
  Sex: Male

DRUGS (4)
  1. CLOPIDOGREL [Suspect]
     Active Substance: CLOPIDOGREL BISULFATE
     Indication: Carotid artery stent insertion
     Dosage: UNK
     Route: 065
  2. ASPIRIN [Suspect]
     Active Substance: ASPIRIN
     Indication: Carotid artery stent insertion
     Dosage: 325 MILLIGRAM, QD
     Route: 048
  3. PRASUGREL [Suspect]
     Active Substance: PRASUGREL
     Indication: Carotid artery stent insertion
     Dosage: 60 MILLIGRAM (LOAD)
     Route: 048
  4. PRASUGREL [Suspect]
     Active Substance: PRASUGREL
     Dosage: 10 MILLIGRAM, QD
     Route: 048

REACTIONS (2)
  - Epistaxis [Recovered/Resolved]
  - Drug resistance [Unknown]
